FAERS Safety Report 10893321 (Version 7)
Quarter: 2018Q3

REPORT INFORMATION
  Report Type: Report from Study
  Country: US (occurrence: US)
  Receive Date: 20150306
  Receipt Date: 20180919
  Transmission Date: 20181010
  Serious: Yes (Death, Hospitalization)
  Sender: FDA-Public Use
  Company Number: US-ACTELION-A-US2015-113951

PATIENT
  Age: 67 Year
  Sex: Female
  Weight: 128.8 kg

DRUGS (4)
  1. TRACLEER [Suspect]
     Active Substance: BOSENTAN
     Indication: PULMONARY ARTERIAL HYPERTENSION
     Dosage: 125 MG, BID
     Route: 048
     Dates: start: 20100930
  2. REVATIO [Concomitant]
     Active Substance: SILDENAFIL CITRATE
  3. TYVASO [Concomitant]
     Active Substance: TREPROSTINIL
  4. DILTIAZEM. [Concomitant]
     Active Substance: DILTIAZEM

REACTIONS (17)
  - Pulmonary arterial hypertension [Unknown]
  - Dyspnoea [Unknown]
  - Overweight [Unknown]
  - Pulmonary function test abnormal [Unknown]
  - Fluid retention [Unknown]
  - Traumatic lung injury [Unknown]
  - Incontinence [Unknown]
  - Cardiac failure congestive [Fatal]
  - Bronchitis [Unknown]
  - Lung infection [Unknown]
  - Blood triglycerides increased [Unknown]
  - Pneumonia [Fatal]
  - Chronic obstructive pulmonary disease [Unknown]
  - Fall [Unknown]
  - Exercise lack of [Unknown]
  - Tachycardia [Unknown]
  - Drug dose omission [Unknown]
